FAERS Safety Report 14754751 (Version 6)
Quarter: 2018Q2

REPORT INFORMATION
  Report Type: Spontaneous
  Country: CA (occurrence: CA)
  Receive Date: 20180413
  Receipt Date: 20180521
  Transmission Date: 20180711
  Serious: Yes (Other)
  Sender: FDA-Public Use
  Company Number: CA-BEH-2018089697

PATIENT
  Age: 45 Year
  Sex: Male
  Weight: 78 kg

DRUGS (2)
  1. PRIVIGEN [Suspect]
     Active Substance: HUMAN IMMUNOGLOBULIN G
     Dosage: 60 G, SINGLE
     Route: 042
     Dates: start: 20180405, end: 20180405
  2. PRIVIGEN [Suspect]
     Active Substance: HUMAN IMMUNOGLOBULIN G
     Indication: IMMUNE THROMBOCYTOPENIC PURPURA
     Dosage: 5 G, TOT
     Route: 042
     Dates: start: 20180405, end: 20180405

REACTIONS (2)
  - Neutropenia [Not Recovered/Not Resolved]
  - Alloimmunisation [Not Recovered/Not Resolved]

NARRATIVE: CASE EVENT DATE: 20180409
